FAERS Safety Report 20689589 (Version 1)
Quarter: 2022Q2

REPORT INFORMATION
  Report Type: Report from Study
  Country: US (occurrence: US)
  Receive Date: 20220408
  Receipt Date: 20220408
  Transmission Date: 20220720
  Serious: Yes (Other)
  Sender: FDA-Public Use
  Company Number: US-SHIRE-US201619619

PATIENT
  Age: 76 Year
  Sex: Female
  Weight: 63 kg

DRUGS (6)
  1. MESALAMINE [Suspect]
     Active Substance: MESALAMINE
     Indication: Colitis ulcerative
     Dosage: 2.4 GRAM, BID
     Route: 048
     Dates: start: 2014
  2. MESALAMINE [Suspect]
     Active Substance: MESALAMINE
     Dosage: 2 DOSAGE FORM, QD
     Route: 065
  3. MESALAMINE [Suspect]
     Active Substance: MESALAMINE
     Dosage: 3 DOSAGE FORM, QD
     Route: 065
     Dates: start: 202111
  4. PEPCID [Concomitant]
     Active Substance: FAMOTIDINE
     Indication: Dyspepsia
     Dosage: UNK, UNKNOWN
     Route: 065
  5. PRILOSEC [Concomitant]
     Active Substance: OMEPRAZOLE MAGNESIUM
     Indication: Gastrooesophageal reflux disease
     Dosage: UNK UNK, QOD
     Route: 065
  6. ESTRADIOL [Concomitant]
     Active Substance: ESTRADIOL
     Indication: Hormone therapy
     Dosage: UNK, QOD
     Route: 065

REACTIONS (8)
  - Colitis ulcerative [Recovering/Resolving]
  - Haematochezia [Unknown]
  - Stress [Not Recovered/Not Resolved]
  - Dyschezia [Unknown]
  - Nausea [Unknown]
  - Muscle spasms [Unknown]
  - Gastrooesophageal reflux disease [Unknown]
  - Inappropriate schedule of product administration [Not Recovered/Not Resolved]

NARRATIVE: CASE EVENT DATE: 20161214
